FAERS Safety Report 9171017 (Version 2)
Quarter: 2013Q2

REPORT INFORMATION
  Report Type: Spontaneous
  Country: JP (occurrence: JP)
  Receive Date: 20130319
  Receipt Date: 20130408
  Transmission Date: 20140414
  Serious: Yes (Hospitalization)
  Sender: FDA-Public Use
  Company Number: JP-SANOFI-AVENTIS-2013SA025792

PATIENT
  Age: 55 Year
  Sex: Male

DRUGS (2)
  1. ALLEGRA [Suspect]
     Indication: RHINITIS ALLERGIC
     Route: 048
     Dates: start: 201206, end: 20130305
  2. REGPARA [Suspect]
     Indication: BLOOD PARATHYROID HORMONE DECREASED
     Route: 048
     Dates: end: 20130305

REACTIONS (1)
  - Altered state of consciousness [Recovering/Resolving]
